FAERS Safety Report 18327476 (Version 1)
Quarter: 2020Q3

REPORT INFORMATION
  Report Type: Spontaneous
  Country: GR (occurrence: GR)
  Receive Date: 20200929
  Receipt Date: 20200929
  Transmission Date: 20201103
  Serious: Yes (Death)
  Sender: FDA-Public Use
  Company Number: GR-JNJFOC-20200930351

PATIENT
  Age: 61 Day
  Sex: Male

DRUGS (4)
  1. FUROSEMIDE. [Concomitant]
     Active Substance: FUROSEMIDE
     Dosage: 2 MG/KG/DAY
     Route: 042
  2. SILDENAFIL. [Concomitant]
     Active Substance: SILDENAFIL
     Dosage: 1 MG/KG/DAY, TITRATED UP TO 3 MG/KG/DAY
     Route: 048
  3. VELETRI [Suspect]
     Active Substance: EPOPROSTENOL
     Indication: PULMONARY HYPERTENSION
     Dosage: 1 NG/KG/MINUTE AND TITRATED UP TO 60 NG/KG/MINUTE
     Route: 042
  4. NITRIC OXIDE. [Concomitant]
     Active Substance: NITRIC OXIDE
     Dosage: 20 PPM

REACTIONS (1)
  - General physical health deterioration [Fatal]
